FAERS Safety Report 4543217-8 (Version None)
Quarter: 2005Q1

REPORT INFORMATION
  Report Type: 
  Country: None (occurrence: None)
  Receive Date: 20050103
  Receipt Date: 20041223
  Transmission Date: 20050727
  Serious: Yes (Other)
  Sender: FDA-Public Use
  Company Number: 200422434GDDC

PATIENT
  Age: 49 Year
  Sex: Male

DRUGS (4)
  1. GAVISCON [Suspect]
     Indication: DYSPEPSIA
     Dosage: DOSE: UNK
     Route: 048
  2. CALCIUM CARBONATE [Suspect]
     Indication: DYSPEPSIA
     Dosage: DOSE: UNK
     Route: 048
  3. ROLAIDS CALCIUM RICH [Concomitant]
  4. FAMOTIDINE [Concomitant]

REACTIONS (3)
  - BARRETT'S OESOPHAGUS [None]
  - GASTROOESOPHAGEAL REFLUX DISEASE [None]
  - NEPHROLITHIASIS [None]
